FAERS Safety Report 6923227-3 (Version None)
Quarter: 2010Q3

REPORT INFORMATION
  Report Type: 
  Country: None (occurrence: None)
  Receive Date: 20100813
  Receipt Date: 20100810
  Transmission Date: 20110219
  Serious: Yes (Hospitalization)
  Sender: FDA-Public Use
  Company Number: JP-ROCHE-718611

PATIENT
  Sex: Female

DRUGS (12)
  1. DENOSINE IV [Suspect]
     Dosage: FORM: INFUSION
     Route: 041
     Dates: start: 20100713, end: 20100725
  2. PREDONINE [Suspect]
     Indication: WEBER-CHRISTIAN DISEASE
     Route: 048
     Dates: start: 20100701
  3. ATARAX [Concomitant]
     Route: 048
     Dates: start: 20100615, end: 20100807
  4. NEORAL [Concomitant]
     Route: 048
     Dates: start: 20100701
  5. ALFAROL [Concomitant]
     Route: 048
     Dates: start: 20100701
  6. TAKEPRON [Concomitant]
     Route: 048
     Dates: start: 20100701
  7. MUCOSTA [Concomitant]
     Route: 048
     Dates: start: 20100701
  8. PROCYLIN [Concomitant]
     Route: 048
     Dates: start: 20100701
  9. LENDORMIN [Concomitant]
     Route: 048
     Dates: end: 20100726
  10. LOXONIN [Concomitant]
     Route: 048
  11. BENAMBAX [Concomitant]
     Dosage: ROUTE: RESPIRATORY IINHALATION)
     Route: 055
     Dates: start: 20100720
  12. NEO-MINOPHAGEN C [Concomitant]
     Route: 041
     Dates: start: 20100611

REACTIONS (1)
  - MENTAL DISORDER [None]
